FAERS Safety Report 9267277 (Version 1)
Quarter: 2013Q2

REPORT INFORMATION
  Report Type: Spontaneous
  Country: US (occurrence: US)
  Receive Date: 20130502
  Receipt Date: 20130502
  Transmission Date: 20140414
  Serious: No
  Sender: FDA-Public Use
  Company Number: US-BAYER-2013-054651

PATIENT
  Age: 76 Year
  Sex: Female
  Weight: 72.56 kg

DRUGS (2)
  1. ALEVE CAPLET [Suspect]
     Indication: ARTHRALGIA
     Dosage: 2 DF, QD
     Route: 048
     Dates: start: 201204, end: 201210
  2. BAYER GENUINE ASPIRIN ORIGINAL STRENGTH [Concomitant]
     Indication: ISCHAEMIC HEART DISEASE PROPHYLAXIS

REACTIONS (2)
  - Drug ineffective [None]
  - Incorrect drug administration duration [None]
